FAERS Safety Report 7659433-2 (Version None)
Quarter: 2011Q3

REPORT INFORMATION
  Report Type: 
  Country: None (occurrence: None)
  Receive Date: 20110805
  Receipt Date: 20110801
  Transmission Date: 20111222
  Serious: Yes (Hospitalization, Other)
  Sender: FDA-Public Use
  Company Number: DE-B.I. PHARMACEUTICALS,INC./RIDGEFIELD-2011-DE-04249DE

PATIENT
  Sex: Female

DRUGS (3)
  1. PRAMIPEXOLE DIHYCHLLORIDE [Suspect]
     Dosage: 2.62 MG
     Route: 048
  2. PRAMIPEXOLE DIHYCHLLORIDE [Suspect]
     Indication: PARKINSON'S DISEASE
     Dosage: 3 ANZ
     Route: 048
     Dates: end: 20100301
  3. PRAMIPEXOLE DIHYCHLLORIDE [Suspect]
     Dosage: 1 ANZ
     Route: 048
     Dates: start: 20100301

REACTIONS (7)
  - ABDOMINAL PAIN UPPER [None]
  - PSYCHOMOTOR HYPERACTIVITY [None]
  - MYALGIA [None]
  - MEDICATION RESIDUE [None]
  - INTESTINAL OBSTRUCTION [None]
  - CONDITION AGGRAVATED [None]
  - CONSTIPATION [None]
